FAERS Safety Report 23241676 (Version 1)
Quarter: 2023Q4

REPORT INFORMATION
  Report Type: Spontaneous
  Country: US (occurrence: None)
  Receive Date: 20231128
  Receipt Date: 20231128
  Transmission Date: 20240110
  Serious: Yes (Other)
  Sender: FDA-Public Use
  Company Number: None

PATIENT
  Age: 14 Year
  Sex: Female
  Weight: 67.5 kg

DRUGS (2)
  1. CARMEX CLASSIC LIP BALM MEDICATED NOS [Suspect]
     Active Substance: UNSPECIFIED INGREDIENT
     Indication: Chapped lips
     Route: 061
  2. BLISTEX LIP [Suspect]
     Active Substance: CAMPHOR OIL\DIMETHICONE\MENTHOL\PHENOL

REACTIONS (7)
  - Lip injury [None]
  - Lip pain [None]
  - Application site injury [None]
  - Speech disorder [None]
  - Eating disorder [None]
  - Product formulation issue [None]
  - Drug abuser [None]

NARRATIVE: CASE EVENT DATE: 20230115
